FAERS Safety Report 21163108 (Version 4)
Quarter: 2022Q4

REPORT INFORMATION
  Report Type: Spontaneous
  Country: US (occurrence: US)
  Receive Date: 20220802
  Receipt Date: 20221121
  Transmission Date: 20230112
  Serious: No
  Sender: FDA-Public Use
  Company Number: US-PFIZER INC-202201021359

PATIENT
  Age: 82 Year
  Sex: Female
  Weight: 67.59 kg

DRUGS (2)
  1. VYNDAMAX [Suspect]
     Active Substance: TAFAMIDIS
     Dosage: TAKES ONE A DAY AROUND 11:30-12:00 USUALLY
     Dates: end: 2022
  2. VYNDAMAX [Suspect]
     Active Substance: TAFAMIDIS
     Dosage: 61 MG, 1X/DAY

REACTIONS (5)
  - Product dose omission in error [Unknown]
  - Liver disorder [Unknown]
  - Memory impairment [Unknown]
  - Constipation [Unknown]
  - Blood potassium increased [Unknown]
